FAERS Safety Report 18109996 (Version 8)
Quarter: 2021Q4

REPORT INFORMATION
  Report Type: Spontaneous
  Country: US (occurrence: MX)
  Receive Date: 20200804
  Receipt Date: 20211005
  Transmission Date: 20220304
  Serious: Yes (Hospitalization, Disabling, Other)
  Sender: FDA-Public Use
  Company Number: MX-BIOMARINAP-MX-2020-131503

PATIENT
  Age: 11 Year
  Sex: Female
  Weight: 28 kg

DRUGS (5)
  1. ALDURAZYME [Suspect]
     Active Substance: LARONIDASE
     Indication: Mucopolysaccharidosis I
     Dosage: 500 UNITS, QW
     Route: 041
     Dates: start: 2009
  2. ALDURAZYME [Suspect]
     Active Substance: LARONIDASE
     Dosage: 17.86 INTERNATIONAL UNIT/KILOGRAM, QW
     Route: 041
     Dates: start: 2011, end: 20200128
  3. ALDURAZYME [Suspect]
     Active Substance: LARONIDASE
     Dosage: 17.86 INTERNATIONAL UNIT/KILOGRAM, QW
     Route: 041
     Dates: start: 2020
  4. LEMTRADA [Concomitant]
     Active Substance: ALEMTUZUMAB
     Indication: Product used for unknown indication
  5. Covid-19 vaccine [Concomitant]
     Indication: COVID-19 immunisation
     Dosage: UNK
     Dates: start: 2021, end: 2021

REACTIONS (7)
  - Arterial disorder [Recovered/Resolved]
  - Mobility decreased [Not Recovered/Not Resolved]
  - Influenza [Unknown]
  - Pyrexia [Unknown]
  - Respiratory symptom [Unknown]
  - Product dose omission issue [Unknown]
  - Cough [Unknown]

NARRATIVE: CASE EVENT DATE: 20110101
